FAERS Safety Report 9377863 (Version 5)
Quarter: 2013Q3

REPORT INFORMATION
  Report Type: Spontaneous
  Country: TR (occurrence: TR)
  Receive Date: 20130701
  Receipt Date: 20130830
  Transmission Date: 20140515
  Serious: Yes (Other)
  Sender: FDA-Public Use
  Company Number: TR-ABBOTT-13P-161-1111631-00

PATIENT
  Age: 28 Year
  Sex: Female
  Weight: 67 kg

DRUGS (6)
  1. HUMIRA [Suspect]
     Indication: ANKYLOSING SPONDYLITIS
     Route: 058
     Dates: start: 20111230, end: 20120925
  2. UNKNOWN ANESTHESIA [Suspect]
     Indication: PRODUCT USED FOR UNKNOWN INDICATION
  3. DICLOFENAC [Concomitant]
     Indication: PRODUCT USED FOR UNKNOWN INDICATION
     Dates: start: 20100303
  4. INH [Concomitant]
     Indication: ANKYLOSING SPONDYLITIS
  5. VITAMIN D [Concomitant]
     Indication: VITAMIN D DEFICIENCY
     Route: 048
     Dates: start: 20130710
  6. CALCIMAX [Concomitant]
     Indication: OSTEOPOROSIS
     Route: 048
     Dates: start: 20130620

REACTIONS (2)
  - Dyspnoea [Recovered/Resolved]
  - Pain [Not Recovered/Not Resolved]
